FAERS Safety Report 10183527 (Version 2)
Quarter: 2014Q2

REPORT INFORMATION
  Report Type: Spontaneous
  Country: US (occurrence: US)
  Receive Date: 20140520
  Receipt Date: 20140613
  Transmission Date: 20141212
  Serious: Yes (Hospitalization)
  Sender: FDA-Public Use
  Company Number: US-LUNDBECK-DKLU1100031

PATIENT
  Age: 15 Year
  Sex: Male

DRUGS (1)
  1. SABRIL     (TABLET) [Suspect]
     Indication: EPILEPSY
     Route: 048
     Dates: start: 20110727

REACTIONS (4)
  - H1N1 influenza [Unknown]
  - Pneumothorax [Unknown]
  - Pneumonia [Unknown]
  - Pulmonary congestion [Unknown]
